FAERS Safety Report 20539577 (Version 1)
Quarter: 2022Q1

REPORT INFORMATION
  Report Type: Spontaneous
  Country: RU (occurrence: RU)
  Receive Date: 20220302
  Receipt Date: 20220302
  Transmission Date: 20220424
  Serious: Yes (Death)
  Sender: FDA-Public Use
  Company Number: RU-JNJFOC-20211052839

PATIENT
  Age: 62 Year
  Sex: Male

DRUGS (11)
  1. DARZALEX [Suspect]
     Active Substance: DARATUMUMAB
     Indication: Plasma cell myeloma
     Dosage: DILUTED PER 100 ML OF 0.9% SODIUM CHLORIDE. INFUSION RATE 50 ML / HOUR
     Route: 041
     Dates: start: 20210420
  2. VELCADE [Concomitant]
     Active Substance: BORTEZOMIB
     Indication: Plasma cell myeloma
     Route: 058
     Dates: start: 20210325, end: 20210404
  3. LOSARTAN [Concomitant]
     Active Substance: LOSARTAN
     Indication: Hypertension
     Route: 065
     Dates: start: 20210416, end: 20210420
  4. OMEPRAZOLE [Concomitant]
     Active Substance: OMEPRAZOLE
     Indication: Gastrointestinal disorder therapy
     Route: 065
     Dates: start: 20210416, end: 20210420
  5. CEFOPERAZONE [Concomitant]
     Active Substance: CEFOPERAZONE
     Indication: Bacterial infection
     Route: 042
     Dates: start: 20210416, end: 20210420
  6. ERALFON [Concomitant]
     Indication: Nephrogenic anaemia
     Route: 058
     Dates: start: 20210416, end: 20210420
  7. ACETAMINOPHEN [Concomitant]
     Active Substance: ACETAMINOPHEN
     Indication: Hyperthermia
     Route: 048
     Dates: start: 20210417, end: 20210417
  8. ZOLEDRONIC ACID [Concomitant]
     Active Substance: ZOLEDRONIC ACID
     Indication: Product used for unknown indication
     Route: 065
     Dates: start: 20210416, end: 20210417
  9. MELPHALAN [Concomitant]
     Active Substance: MELPHALAN
     Indication: Plasma cell myeloma
     Route: 058
     Dates: start: 20210325, end: 20210328
  10. METHYLPREDNISOLONE [Concomitant]
     Active Substance: METHYLPREDNISOLONE
     Indication: Plasma cell myeloma
     Route: 041
     Dates: start: 20210325, end: 20210328
  11. BISOPROLOL [Concomitant]
     Active Substance: BISOPROLOL
     Indication: Hypertension
     Dosage: 2,5 MG
     Route: 065
     Dates: start: 20210416, end: 20210420

REACTIONS (9)
  - Infusion related reaction [Fatal]
  - Bradycardia [Fatal]
  - Depressed level of consciousness [Fatal]
  - Hypotension [Fatal]
  - Respiratory rate increased [Fatal]
  - Tachycardia [Fatal]
  - Dyspnoea [Fatal]
  - Oxygen saturation decreased [Fatal]
  - Hypertension [Fatal]

NARRATIVE: CASE EVENT DATE: 20210420
